FAERS Safety Report 20808323 (Version 2)
Quarter: 2022Q3

REPORT INFORMATION
  Report Type: Spontaneous
  Country: US (occurrence: US)
  Receive Date: 20220510
  Receipt Date: 20220722
  Transmission Date: 20221027
  Serious: Yes (Other)
  Sender: FDA-Public Use
  Company Number: US-BAYER-2022A066498

PATIENT
  Age: 27 Year
  Sex: Male

DRUGS (2)
  1. KOGENATE FS [Suspect]
     Active Substance: ANTIHEMOPHILIC FACTOR, HUMAN RECOMBINANT
     Dosage: 2500 U
  2. KOGENATE FS [Suspect]
     Active Substance: ANTIHEMOPHILIC FACTOR, HUMAN RECOMBINANT
     Dosage: 5 DOSES TO TREAT FINGER BLEED
     Dates: start: 20220225

REACTIONS (3)
  - Limb injury [Recovered/Resolved]
  - Traumatic haemorrhage [Recovered/Resolved]
  - Intentional product misuse [None]

NARRATIVE: CASE EVENT DATE: 20220225
